FAERS Safety Report 14964866 (Version 2)
Quarter: 2018Q3

REPORT INFORMATION
  Report Type: Report from Study
  Country: US (occurrence: US)
  Receive Date: 20180601
  Receipt Date: 20180709
  Transmission Date: 20181010
  Serious: Yes (Other)
  Sender: FDA-Public Use
  Company Number: PHEH2018US020521

PATIENT
  Age: 76 Year
  Weight: 75.7 kg

DRUGS (1)
  1. TASIGNA [Suspect]
     Active Substance: NILOTINIB
     Indication: PRODUCT USED FOR UNKNOWN INDICATION
     Dosage: 200 MG, BID
     Route: 048
     Dates: start: 20080301

REACTIONS (2)
  - Hypertension [Unknown]
  - Poor peripheral circulation [Unknown]

NARRATIVE: CASE EVENT DATE: 20120101
